FAERS Safety Report 14586552 (Version 1)
Quarter: 2018Q1

REPORT INFORMATION
  Report Type: Spontaneous
  Country: CH (occurrence: CH)
  Receive Date: 20180301
  Receipt Date: 20180301
  Transmission Date: 20180509
  Serious: Yes (Other)
  Sender: FDA-Public Use
  Company Number: CH-ASTRAZENECA-2018SE22902

PATIENT
  Age: 28607 Day
  Sex: Male

DRUGS (8)
  1. LUMIGAN [Concomitant]
     Active Substance: BIMATOPROST
  2. TRITTICO [Suspect]
     Active Substance: TRAZODONE HYDROCHLORIDE
     Route: 048
     Dates: start: 201709
  3. AMLODIPINE [Concomitant]
     Active Substance: AMLODIPINE BESYLATE
  4. BETASERC [Concomitant]
     Active Substance: BETAHISTINE
     Dosage: 16.0MG UNKNOWN
  5. EUTHYROX [Concomitant]
     Active Substance: LEVOTHYROXINE SODIUM
  6. SEROQUEL [Suspect]
     Active Substance: QUETIAPINE FUMARATE
     Dosage: 18.75MG UNKNOWN
     Route: 048
     Dates: start: 20171006
  7. DISTRANEURIN [Suspect]
     Active Substance: CLOMETHIAZOLE
     Route: 048
     Dates: start: 20171006, end: 20180124
  8. XARELTO [Concomitant]
     Active Substance: RIVAROXABAN

REACTIONS (1)
  - Liver injury [Recovering/Resolving]

NARRATIVE: CASE EVENT DATE: 20180118
